FAERS Safety Report 13662633 (Version 1)
Quarter: 2017Q2

REPORT INFORMATION
  Report Type: Spontaneous
  Country: US (occurrence: US)
  Receive Date: 20170616
  Receipt Date: 20170616
  Transmission Date: 20170830
  Serious: Yes (Hospitalization)
  Sender: FDA-Public Use
  Company Number: None

PATIENT
  Age: 76 Year
  Sex: Male
  Weight: 86.6 kg

DRUGS (2)
  1. DOXYCYCLINE. [Suspect]
     Active Substance: DOXYCYCLINE
     Route: 048
     Dates: start: 20160623, end: 20160628
  2. CIPROFLOXACIN. [Suspect]
     Active Substance: CIPROFLOXACIN
     Route: 048
     Dates: start: 20160621, end: 20160623

REACTIONS (5)
  - Skin hypertrophy [None]
  - Urine output decreased [None]
  - Acute kidney injury [None]
  - Gastric haemorrhage [None]
  - Neuropathy peripheral [None]

NARRATIVE: CASE EVENT DATE: 20160623
